FAERS Safety Report 4612771-X (Version None)
Quarter: 2005Q1

REPORT INFORMATION
  Report Type: 
  Country: None (occurrence: None)
  Receive Date: 20050317
  Receipt Date: 20050317
  Transmission Date: 20050727
  Serious: Yes (Death)
  Sender: FDA-Public Use
  Company Number: None

PATIENT
  Weight: 113.3993 kg

DRUGS (1)
  1. EXIDINE [Suspect]
     Indication: PREOPERATIVE CARE
     Dosage: TOPICAL
     Route: 061
     Dates: start: 20041104

REACTIONS (1)
  - MEDICATION ERROR [None]
